FAERS Safety Report 7691614-4 (Version None)
Quarter: 2011Q3

REPORT INFORMATION
  Report Type: 
  Country: None (occurrence: None)
  Receive Date: 20110818
  Receipt Date: 20110815
  Transmission Date: 20111222
  Serious: Yes (Other)
  Sender: FDA-Public Use
  Company Number: CHPA2011US10846

PATIENT
  Sex: Male

DRUGS (2)
  1. VOLTAREN [Suspect]
     Indication: MUSCLE STRAIN
     Dosage: 4 G, BID
     Route: 061
     Dates: start: 20110513, end: 20110601
  2. NAPROSYN [Concomitant]
     Indication: INFLAMMATION
     Dosage: 500 MG, BID
     Route: 048

REACTIONS (4)
  - ROTATOR CUFF SYNDROME [None]
  - THERAPEUTIC RESPONSE UNEXPECTED [None]
  - OFF LABEL USE [None]
  - DRUG ADMINISTERED AT INAPPROPRIATE SITE [None]
